FAERS Safety Report 6546027-5 (Version None)
Quarter: 2010Q1

REPORT INFORMATION
  Report Type: 
  Country: None (occurrence: None)
  Receive Date: 20100121
  Receipt Date: 20100121
  Transmission Date: 20100710
  Serious: No
  Sender: FDA-Public Use
  Company Number: None

PATIENT
  Age: 34 Year

DRUGS (1)
  1. ONDANSETRON [Suspect]
     Dosage: 8 MG ONCE IV
     Route: 042

REACTIONS (2)
  - DYSTONIA [None]
  - TACHYCARDIA [None]
